FAERS Safety Report 13278445 (Version 1)
Quarter: 2017Q1

REPORT INFORMATION
  Report Type: Spontaneous
  Country: US (occurrence: US)
  Receive Date: 20170228
  Receipt Date: 20170228
  Transmission Date: 20170428
  Serious: Yes (Other)
  Sender: FDA-Public Use
  Company Number: US-BAYER-2017-038592

PATIENT
  Age: 23 Month
  Sex: Female

DRUGS (1)
  1. A AND D ORIGINAL [Suspect]
     Active Substance: LANOLIN\PETROLATUM
     Indication: DERMATITIS DIAPER
     Dosage: APPLY TO SKIN AS NEEDED
     Route: 061

REACTIONS (1)
  - Accidental exposure to product by child [Recovered/Resolved]

NARRATIVE: CASE EVENT DATE: 20170226
